FAERS Safety Report 6283225-2 (Version None)
Quarter: 2009Q3

REPORT INFORMATION
  Report Type: 
  Country: None (occurrence: None)
  Receive Date: 20090722
  Receipt Date: 20090715
  Transmission Date: 20100115
  Serious: Yes (Hospitalization)
  Sender: FDA-Public Use
  Company Number: TPA2009A01885

PATIENT
  Age: 57 Year
  Sex: Female
  Weight: 63.5036 kg

DRUGS (4)
  1. PREVACID [Suspect]
     Indication: GASTROOESOPHAGEAL REFLUX DISEASE
     Dosage: PER ORAL
     Route: 048
     Dates: start: 20040401, end: 20090415
  2. METOPROLO (METOPROLOL) [Concomitant]
  3. VYTORIN [Concomitant]
  4. ARTHROTEC [Concomitant]

REACTIONS (4)
  - ATRIAL FIBRILLATION [None]
  - BLOOD IRON DECREASED [None]
  - ECONOMIC PROBLEM [None]
  - TREATMENT NONCOMPLIANCE [None]
